FAERS Safety Report 16976794 (Version 1)
Quarter: 2019Q4

REPORT INFORMATION
  Report Type: Report from Study
  Country: US (occurrence: US)
  Receive Date: 20191030
  Receipt Date: 20191030
  Transmission Date: 20200122
  Serious: Yes (Death, Hospitalization)
  Sender: FDA-Public Use
  Company Number: PHHO2007US18719

PATIENT
  Age: 52 Year
  Sex: Male
  Weight: 73.5 kg

DRUGS (4)
  1. ZORTRESS [Suspect]
     Active Substance: EVEROLIMUS
     Indication: RENAL CANCER METASTATIC
     Dosage: 10MG/DAY
     Route: 048
     Dates: start: 20070821, end: 20071015
  2. ZORTRESS [Suspect]
     Active Substance: EVEROLIMUS
     Dosage: UNK
     Route: 048
     Dates: start: 20071023, end: 20071104
  3. OXYCONTIN [Concomitant]
     Active Substance: OXYCODONE HYDROCHLORIDE
     Indication: PRODUCT USED FOR UNKNOWN INDICATION
     Route: 065
  4. OXYCODONE [Concomitant]
     Active Substance: OXYCODONE
     Indication: PRODUCT USED FOR UNKNOWN INDICATION
     Route: 065

REACTIONS (26)
  - Electrolyte imbalance [Unknown]
  - Cough [Unknown]
  - Alanine aminotransferase abnormal [Unknown]
  - Anaemia [Recovering/Resolving]
  - Platelet disorder [Unknown]
  - Blood magnesium abnormal [Unknown]
  - Blood urea abnormal [Unknown]
  - Blood creatinine abnormal [Unknown]
  - Aspartate aminotransferase abnormal [Unknown]
  - Haemoglobin abnormal [Unknown]
  - Renal cancer metastatic [Fatal]
  - White blood cell count abnormal [Unknown]
  - Malignant neoplasm progression [Fatal]
  - Asthenia [Unknown]
  - Dehydration [Unknown]
  - Mental status changes [Unknown]
  - Hyponatraemia [Unknown]
  - Hypercalcaemia [Unknown]
  - Renal failure [Recovering/Resolving]
  - Sputum discoloured [Unknown]
  - Occult blood positive [Unknown]
  - Fall [Unknown]
  - Abdominal pain [Unknown]
  - Abdominal distension [Unknown]
  - Oedema peripheral [Unknown]
  - Blood potassium abnormal [Unknown]

NARRATIVE: CASE EVENT DATE: 20071009
